FAERS Safety Report 9837139 (Version 1)
Quarter: 2014Q1

REPORT INFORMATION
  Report Type: Spontaneous
  Country: BR (occurrence: BR)
  Receive Date: 20140123
  Receipt Date: 20140123
  Transmission Date: 20141002
  Serious: Yes (Hospitalization)
  Sender: FDA-Public Use
  Company Number: BR-ASTRAZENECA-2014SE03603

PATIENT
  Age: 54 Year
  Sex: Female
  Weight: 70 kg

DRUGS (9)
  1. OMEPRAZOLE [Suspect]
     Indication: GASTRITIS
     Route: 048
  2. OMEPRAZOLE [Suspect]
     Indication: ULCER
     Route: 048
  3. ATENOLOL [Suspect]
     Indication: HYPERTENSION
     Route: 048
     Dates: start: 201307
  4. BRILINTA [Suspect]
     Indication: MYOCARDIAL INFARCTION
     Route: 048
     Dates: start: 201307
  5. SIMVASTATIN [Concomitant]
     Indication: BLOOD CHOLESTEROL INCREASED
     Route: 048
  6. LOSARTAN POTASSIUM [Concomitant]
     Indication: HYPERTENSION
     Route: 048
     Dates: start: 201306, end: 201307
  7. DEPAKOTE [Concomitant]
     Indication: HYPERTHYROIDISM
     Route: 048
  8. DAFORIN [Concomitant]
     Indication: MIGRAINE
     Dosage: DAILY
     Route: 048
     Dates: end: 201307
  9. SERTRALINE [Concomitant]
     Indication: MIGRAINE
     Dosage: DAILY
     Route: 048
     Dates: start: 201307

REACTIONS (9)
  - Myocardial infarction [Recovered/Resolved]
  - Blood pressure increased [Unknown]
  - Nightmare [Not Recovered/Not Resolved]
  - Chest discomfort [Not Recovered/Not Resolved]
  - Depression [Recovered/Resolved]
  - Insomnia [Not Recovered/Not Resolved]
  - Restlessness [Not Recovered/Not Resolved]
  - Hyperhidrosis [Not Recovered/Not Resolved]
  - Migraine [Recovered/Resolved]
